FAERS Safety Report 25362270 (Version 2)
Quarter: 2025Q3

REPORT INFORMATION
  Report Type: Spontaneous
  Country: NZ (occurrence: NZ)
  Receive Date: 20250527
  Receipt Date: 20250704
  Transmission Date: 20251020
  Serious: Yes (Hospitalization)
  Sender: CSL BEHRING
  Company Number: NZ-BEH-2025206107

PATIENT
  Age: 22 Month
  Sex: Female
  Weight: 9 kg

DRUGS (3)
  1. HUMAN IMMUNOGLOBULIN G [Suspect]
     Active Substance: HUMAN IMMUNOGLOBULIN G
     Indication: Myelitis transverse
     Route: 042
     Dates: start: 20250514, end: 20250514
  2. ACYCLOVIR [Concomitant]
     Active Substance: ACYCLOVIR
  3. CEFTRIAXONE [Concomitant]
     Active Substance: CEFTRIAXONE

REACTIONS (5)
  - Pyrexia [Recovered/Resolved]
  - Heart rate increased [Recovered/Resolved]
  - Hypotension [Unknown]
  - Urine output decreased [Unknown]
  - Off label use [Unknown]

NARRATIVE: CASE EVENT DATE: 20250514
